FAERS Safety Report 19456571 (Version 1)
Quarter: 2021Q2

REPORT INFORMATION
  Report Type: Spontaneous
  Country: US (occurrence: US)
  Receive Date: 20210624
  Receipt Date: 20210624
  Transmission Date: 20210717
  Serious: Yes (Death, Hospitalization)
  Sender: FDA-Public Use
  Company Number: None

PATIENT
  Age: 72 Year
  Sex: Male
  Weight: 119.25 kg

DRUGS (1)
  1. CASIRIVIMAB/IMDEVIMAB [Suspect]
     Active Substance: CASIRIVIMAB\IMDEVIMAB
     Indication: COVID-19
     Dates: start: 20210507

REACTIONS (10)
  - Asthenia [None]
  - Nervousness [None]
  - Oxygen saturation decreased [None]
  - Gait disturbance [None]
  - Dyspnoea [None]
  - Bradycardia [None]
  - Atrial fibrillation [None]
  - Heart rate decreased [None]
  - Confusional state [None]
  - Agitation [None]

NARRATIVE: CASE EVENT DATE: 20210507
